FAERS Safety Report 7229172-0 (Version None)
Quarter: 2011Q1

REPORT INFORMATION
  Report Type: 
  Country: None (occurrence: None)
  Receive Date: 20110117
  Receipt Date: 20110112
  Transmission Date: 20110831
  Serious: Yes (Death)
  Sender: FDA-Public Use
  Company Number: AU-PFIZER INC-2010173253

PATIENT
  Age: 60 Year
  Sex: Female

DRUGS (5)
  1. VALPROIC ACID [Suspect]
  2. OXAZEPAM [Suspect]
  3. AMITRIPTYLINE [Suspect]
  4. SERTRALINE HYDROCHLORIDE [Suspect]
  5. MORPHINE HCL ELIXIR [Suspect]

REACTIONS (2)
  - DRUG INTERACTION [None]
  - DEATH [None]
